FAERS Safety Report 4836210-9 (Version None)
Quarter: 2005Q4

REPORT INFORMATION
  Report Type: 
  Country: None (occurrence: None)
  Receive Date: 20051123
  Receipt Date: 20051115
  Transmission Date: 20060501
  Serious: Yes (Hospitalization)
  Sender: FDA-Public Use
  Company Number: US-JNJFOC-20051004157

PATIENT
  Age: 79 Year
  Sex: Female

DRUGS (6)
  1. RAZADYNE ER [Suspect]
     Route: 048
  2. RAZADYNE ER [Suspect]
     Route: 048
  3. RAZADYNE ER [Suspect]
     Dosage: ONE DOSE GIVEN
     Route: 048
  4. RAZADYNE ER [Suspect]
     Dosage: THERAPY DISCONTINUED FOR 6 DAYS WHILE HOSPITALIZED
     Route: 048
  5. REMINYL [Suspect]
     Route: 048
  6. NAMENDA [Concomitant]

REACTIONS (4)
  - ABASIA [None]
  - COGNITIVE DETERIORATION [None]
  - DRUG DOSE OMISSION [None]
  - PNEUMONIA [None]
